FAERS Safety Report 6301822-2 (Version None)
Quarter: 2009Q3

REPORT INFORMATION
  Report Type: 
  Country: None (occurrence: None)
  Receive Date: 20090807
  Receipt Date: 20090730
  Transmission Date: 20100115
  Serious: Yes (Hospitalization)
  Sender: FDA-Public Use
  Company Number: US-CELGENEUS-163-20785-09072337

PATIENT
  Sex: Female
  Weight: 63.31 kg

DRUGS (16)
  1. THALOMID [Suspect]
     Indication: MULTIPLE MYELOMA
     Route: 048
     Dates: start: 20070401
  2. THALOMID [Suspect]
     Dosage: 100-150 MG
     Route: 048
     Dates: start: 20020701, end: 20020801
  3. REVLIMID [Suspect]
     Indication: MULTIPLE MYELOMA
     Route: 048
     Dates: start: 20060726
  4. REVLIMID [Suspect]
     Route: 048
     Dates: start: 20090421
  5. VELCADE [Suspect]
     Indication: MULTIPLE MYELOMA
     Route: 065
     Dates: start: 20060626
  6. VELCADE [Suspect]
     Route: 065
     Dates: start: 20090421
  7. VELCADE [Suspect]
     Route: 065
     Dates: start: 20050517, end: 20051020
  8. DEXAMETHASONE [Suspect]
     Indication: MULTIPLE MYELOMA
     Route: 065
     Dates: start: 20090421
  9. DEXAMETHASONE [Suspect]
     Route: 065
     Dates: start: 20050517
  10. CISPLATIN [Suspect]
     Indication: MULTIPLE MYELOMA
     Route: 065
  11. ADRIAMYCIN RDF [Suspect]
     Indication: MULTIPLE MYELOMA
     Route: 065
  12. CYCLOPHOSPHAMIDE [Suspect]
     Indication: MULTIPLE MYELOMA
     Route: 065
  13. ETOPOSIDE [Suspect]
     Indication: MULTIPLE MYELOMA
     Route: 065
  14. VORINOSTAT [Suspect]
     Indication: MULTIPLE MYELOMA
     Route: 065
     Dates: start: 20090421
  15. BLOOD PRODUCT [Concomitant]
     Indication: DRUG USE FOR UNKNOWN INDICATION
     Route: 065
  16. GROWTH FACTOR SUPPORT [Concomitant]
     Indication: DRUG USE FOR UNKNOWN INDICATION
     Route: 065

REACTIONS (11)
  - BLOOD CREATININE INCREASED [None]
  - DIARRHOEA [None]
  - DISEASE PROGRESSION [None]
  - FATIGUE [None]
  - FEBRILE NEUTROPENIA [None]
  - HYPOCALCAEMIA [None]
  - NAUSEA [None]
  - PLASMACYTOMA [None]
  - RESPIRATORY SYNCYTIAL VIRUS INFECTION [None]
  - VITAMIN D DEFICIENCY [None]
  - VOMITING [None]
